FAERS Safety Report 18103401 (Version 1)
Quarter: 2020Q3

REPORT INFORMATION
  Report Type: Spontaneous
  Country: DE (occurrence: DE)
  Receive Date: 20200803
  Receipt Date: 20200803
  Transmission Date: 20201103
  Serious: Yes (Hospitalization)
  Sender: FDA-Public Use
  Company Number: DE-MICRO LABS LIMITED-ML2020-02289

PATIENT

DRUGS (4)
  1. SODIUM NITROPRUSSIDE. [Suspect]
     Active Substance: SODIUM NITROPRUSSIDE
     Indication: CEREBRAL VASOCONSTRICTION
     Dosage: VIA AN EXTERNAL VENTRICULAR DRAIN (EACH BOLUS CONTAINED 2?10MG OF SODIUM NITROPRUSSIDE) AT A DOSE OF
     Route: 020
  2. MOLSIDOMINE [Suspect]
     Active Substance: MOLSIDOMINE
     Dosage: THE MOLSIDOMINE DOSE WAS INCREASED IN A STEPWISE MANNER (1.6 MG/H) EVERY 3?4 H TO ACHIEVE A DOSE OF
  3. MOLSIDOMINE [Suspect]
     Active Substance: MOLSIDOMINE
     Indication: CEREBRAL VASOCONSTRICTION
     Dosage: 1.6 MG/H (2 AMPOULES/20 MG DILUTED IN 50 ML SALINE AND STARTED AT 2 ML/H) WITHIN 12?36 H AFTER ASAH
     Route: 042
  4. NIMODIPINE. [Concomitant]
     Active Substance: NIMODIPINE

REACTIONS (1)
  - Hypertension [Unknown]
